FAERS Safety Report 8771013 (Version 3)
Quarter: 2013Q1

REPORT INFORMATION
  Report Type: Report from Study
  Country: JP (occurrence: JP)
  Receive Date: 20120906
  Receipt Date: 20130204
  Transmission Date: 20140127
  Serious: Yes (Hospitalization)
  Sender: FDA-Public Use
  Company Number: JP-009507513-2012SP032449

PATIENT
  Age: 67 Year
  Sex: Female
  Weight: 58 kg

DRUGS (16)
  1. PEGINTRON POWDER FOR INJECTION 150MICROG [Suspect]
     Indication: CHRONIC HEPATITIS C
     Dosage: 1.5 MICROGRAM PER KILOGRAM, QW
     Route: 058
     Dates: start: 20120207
  2. REBETOL [Suspect]
     Indication: CHRONIC HEPATITIS C
     Dosage: 400 MG, QD
     Route: 048
     Dates: start: 20120207
  3. REBETOL [Suspect]
     Dosage: 400 MG, QD
     Route: 048
     Dates: start: 20120329, end: 20120403
  4. REBETOL [Suspect]
     Dosage: 200 MG, QD
     Route: 048
     Dates: start: 20120404
  5. REBETOL [Suspect]
     Dosage: 100 MG, QD
     Route: 048
     Dates: start: 20120501, end: 20120521
  6. REBETOL [Suspect]
     Dosage: 200 MG, QD
     Route: 048
     Dates: start: 20120522, end: 20120528
  7. REBETOL [Suspect]
     Dosage: 400 MG, QD
     Route: 048
     Dates: start: 20120529
  8. TELAVIC [Suspect]
     Indication: CHRONIC HEPATITIS C
     Dosage: 1500 MG, QD
     Route: 048
     Dates: start: 20120207
  9. TELAVIC [Suspect]
     Dosage: 1500 MG, QD
     Route: 048
     Dates: start: 20120329
  10. NESP [Concomitant]
     Indication: PROPHYLAXIS
     Dosage: 120 MICROGRAM, QD
     Route: 058
     Dates: start: 20120228
  11. NESP [Concomitant]
     Dosage: 60 MICROGRAM, PRN
     Route: 058
     Dates: start: 20120306, end: 20120306
  12. NESP [Concomitant]
     Dosage: 60 MICROGRAM, QD, AS NEEDED
     Route: 058
     Dates: start: 20120313, end: 20120313
  13. GASMOTIN [Concomitant]
     Indication: PROPHYLAXIS
     Dosage: 15 MG, QD
     Route: 048
  14. OMERAP [Concomitant]
     Indication: PROPHYLAXIS
     Dosage: 10 MG, QD
     Route: 048
  15. SEDEKOPAN [Concomitant]
     Indication: PROPHYLAXIS
     Dosage: 1 MG, QD
     Route: 048
  16. OMERAP [Concomitant]
     Indication: PROPHYLAXIS
     Dosage: 10 MG, QD
     Route: 048
     Dates: start: 20120221

REACTIONS (1)
  - Anaemia [Not Recovered/Not Resolved]
